FAERS Safety Report 15586695 (Version 1)
Quarter: 2018Q4

REPORT INFORMATION
  Report Type: Other
  Country: JP (occurrence: JP)
  Receive Date: 20181105
  Receipt Date: 20181105
  Transmission Date: 20190205
  Serious: Yes (Hospitalization)
  Sender: FDA-Public Use
  Company Number: JP-ACTELION-A-CH2018-181069

PATIENT
  Age: 37 Year
  Sex: Female

DRUGS (2)
  1. EPOPROSTENOL SODIUM. [Suspect]
     Active Substance: EPOPROSTENOL SODIUM
     Indication: PULMONARY ARTERIAL HYPERTENSION
     Dosage: UNK
     Route: 042
  2. EPOPROSTENOL SODIUM. [Suspect]
     Active Substance: EPOPROSTENOL SODIUM
     Dosage: 86 NG/KG, PER MIN
     Route: 042

REACTIONS (6)
  - Mediastinal abscess [Recovering/Resolving]
  - Device related infection [Recovering/Resolving]
  - Haematoma [Recovering/Resolving]
  - Complication associated with device [Recovering/Resolving]
  - Vascular injury [Recovering/Resolving]
  - Device related thrombosis [Recovering/Resolving]
